FAERS Safety Report 25688071 (Version 1)
Quarter: 2025Q3

REPORT INFORMATION
  Report Type: Spontaneous
  Country: US (occurrence: US)
  Receive Date: 20250817
  Receipt Date: 20250817
  Transmission Date: 20251021
  Serious: Yes (Hospitalization, Other)
  Sender: DAIICHI
  Company Number: US-DSJP-DS-2025-159219-US

PATIENT
  Sex: Female

DRUGS (1)
  1. DATROWAY [Suspect]
     Active Substance: DATOPOTAMAB DERUXTECAN-DLNK
     Indication: Lung neoplasm malignant
     Route: 065
     Dates: start: 202507

REACTIONS (3)
  - Pneumonia [Unknown]
  - Interstitial lung disease [Unknown]
  - Lung opacity [Unknown]

NARRATIVE: CASE EVENT DATE: 20250101
